FAERS Safety Report 7295273-4 (Version None)
Quarter: 2011Q1

REPORT INFORMATION
  Report Type: 
  Country: None (occurrence: None)
  Receive Date: 20110216
  Receipt Date: 20110215
  Transmission Date: 20110831
  Serious: Yes (Death)
  Sender: FDA-Public Use
  Company Number: VE-PFIZER INC-2011033449

PATIENT
  Age: 53 Year
  Sex: Female

DRUGS (3)
  1. LIPITOR [Suspect]
     Indication: HYPERCHOLESTEROLAEMIA
     Dosage: 20 MG, 1X/DAY
     Route: 048
     Dates: end: 20110208
  2. DICLOFENAC SODIUM [Concomitant]
     Indication: ARTHRITIS
     Dosage: 50 MG, 1X/DAY
     Route: 048
     Dates: end: 20110208
  3. ATACAND [Concomitant]
     Indication: HYPERTENSION
     Dosage: 8 MG, 1X/DAY
     Route: 048
     Dates: end: 20110208

REACTIONS (1)
  - MYOCARDIAL INFARCTION [None]
